FAERS Safety Report 6546298-5 (Version None)
Quarter: 2010Q1

REPORT INFORMATION
  Report Type: 
  Country: None (occurrence: None)
  Receive Date: 20100122
  Receipt Date: 20100112
  Transmission Date: 20100710
  Serious: Yes (Hospitalization)
  Sender: FDA-Public Use
  Company Number: BR-ROCHE-666741

PATIENT
  Sex: Male
  Weight: 71 kg

DRUGS (7)
  1. FUZEON [Suspect]
     Indication: HIV INFECTION
     Dosage: DOSE: 90 MG/ML
     Route: 065
     Dates: start: 20091020, end: 20091101
  2. INVIRASE [Suspect]
     Indication: DRUG USE FOR UNKNOWN INDICATION
     Route: 065
  3. DARUNAVIR [Concomitant]
     Indication: HIV INFECTION
     Route: 048
     Dates: start: 20091020
  4. RALTEGRAVIR [Concomitant]
     Indication: HIV INFECTION
     Route: 048
     Dates: start: 20091020
  5. LAMIVUDINE [Concomitant]
     Indication: HIV INFECTION
     Route: 048
     Dates: start: 20080101
  6. VIDEX [Concomitant]
     Indication: HIV INFECTION
     Dosage: STRENGTH: 300 MG
     Route: 048
     Dates: start: 20080101
  7. VIDEX [Concomitant]
     Dosage: STRENGTH: 250 MG
     Route: 048

REACTIONS (8)
  - BLOOD PRESSURE INCREASED [None]
  - DIABETES MELLITUS [None]
  - DYSPEPSIA [None]
  - INJECTION SITE REACTION [None]
  - MALAISE [None]
  - NERVOUSNESS [None]
  - VIRAL LOAD INCREASED [None]
  - WEIGHT DECREASED [None]
